FAERS Safety Report 7346474-8 (Version None)
Quarter: 2011Q1

REPORT INFORMATION
  Report Type: 
  Country: None (occurrence: None)
  Receive Date: 20110311
  Receipt Date: 20110216
  Transmission Date: 20110831
  Serious: Yes (Other)
  Sender: FDA-Public Use
  Company Number: US-JNJFOC-20110301843

PATIENT
  Sex: Female
  Weight: 62.1 kg

DRUGS (9)
  1. IRON TABLETS [Concomitant]
     Dosage: 500 (UNITS UNSPECIFIED) EXPOSURE FROM WEEK 26 TO TILL BIRTH
     Route: 048
  2. ORTHO-NOVUM 7/7/7-21 [Suspect]
     Indication: CONTRACEPTION
     Route: 048
     Dates: start: 20090106, end: 20101019
  3. GOLIMUMAB [Concomitant]
     Indication: COLITIS ULCERATIVE
     Route: 058
     Dates: start: 20090812, end: 20101006
  4. PLACEBO [Concomitant]
     Indication: COLITIS ULCERATIVE
     Route: 058
     Dates: start: 20090812, end: 20101006
  5. TYLENOL [Concomitant]
     Route: 048
  6. LIALDA [Concomitant]
     Indication: COLITIS ULCERATIVE
     Route: 048
  7. METAMUCIL-2 [Concomitant]
     Route: 048
  8. PRENATAL VITAMINS [Concomitant]
     Dosage: EXPOSURE FROM WEEK 26 TO TILL BIRTH
     Route: 048
  9. PRILOSEC [Concomitant]
     Indication: GASTROOESOPHAGEAL REFLUX DISEASE
     Route: 048

REACTIONS (5)
  - CAESAREAN SECTION [None]
  - PREGNANCY ON ORAL CONTRACEPTIVE [None]
  - HAEMOGLOBIN DECREASED [None]
  - DRUG EXPOSURE DURING PREGNANCY [None]
  - BREECH PRESENTATION [None]
